FAERS Safety Report 9262435 (Version 1)
Quarter: 2013Q2

REPORT INFORMATION
  Report Type: Spontaneous
  Country: US (occurrence: None)
  Receive Date: 20130425
  Receipt Date: 20130425
  Transmission Date: 20140414
  Serious: Yes (Other)
  Sender: FDA-Public Use
  Company Number: None

PATIENT
  Age: 42 Year
  Sex: Female

DRUGS (2)
  1. XYLOCAINE INJECTION WITH EPINEPHRINE [Suspect]
     Indication: BIOPSY BREAST
     Dosage: PRIOR TO PROCEDURE
     Route: 023
     Dates: start: 20130422, end: 20130422
  2. XYLOCAINE [Concomitant]

REACTIONS (4)
  - Drug ineffective [None]
  - Procedural pain [None]
  - Product quality issue [None]
  - Emotional distress [None]
